FAERS Safety Report 11156745 (Version 1)
Quarter: 2015Q2

REPORT INFORMATION
  Report Type: Spontaneous
  Country: PL (occurrence: PL)
  Receive Date: 20150602
  Receipt Date: 20150602
  Transmission Date: 20150821
  Serious: Yes (Other)
  Sender: FDA-Public Use
  Company Number: PL-TEVA-566240ISR

PATIENT
  Age: 78 Year
  Sex: Female
  Weight: 78 kg

DRUGS (2)
  1. LEUKOWORYNA [Suspect]
     Active Substance: LEUCOVORIN
     Route: 042
     Dates: start: 20140415
  2. 5FLUOROURACYL [Suspect]
     Active Substance: FLUOROURACIL
     Dosage: 780 MG + 1140 MG
     Route: 042
     Dates: start: 20140415

REACTIONS (1)
  - Neutropenia [Recovering/Resolving]

NARRATIVE: CASE EVENT DATE: 20140424
